FAERS Safety Report 9394962 (Version 1)
Quarter: 2013Q3

REPORT INFORMATION
  Report Type: Spontaneous
  Country: US (occurrence: US)
  Receive Date: 20130711
  Receipt Date: 20130711
  Transmission Date: 20140515
  Serious: No
  Sender: FDA-Public Use
  Company Number: US-COVIDIEN/TYCO HEALTHCARE/MALLINCKRODT-T201302233

PATIENT
  Age: 52 Year
  Sex: Female
  Weight: 63.49 kg

DRUGS (6)
  1. OXYCODONE [Suspect]
     Indication: PAIN
     Dosage: 30 MG, Q6
     Route: 048
     Dates: start: 20130425
  2. OXYCODONE [Suspect]
     Dosage: 30 MG, Q4H
     Route: 048
     Dates: start: 2013
  3. OXYCONTIN [Concomitant]
     Indication: PAIN
     Dosage: UNK, QD
     Route: 048
     Dates: end: 20130425
  4. ABILIFY [Concomitant]
  5. VITAMIN D                          /00107901/ [Concomitant]
  6. XANAX [Concomitant]

REACTIONS (3)
  - Inappropriate schedule of drug administration [Not Recovered/Not Resolved]
  - Pain [Recovered/Resolved]
  - Drug effect decreased [Not Recovered/Not Resolved]
